FAERS Safety Report 17011010 (Version 4)
Quarter: 2019Q4

REPORT INFORMATION
  Report Type: Report from Study
  Country: US (occurrence: US)
  Receive Date: 20191108
  Receipt Date: 20191202
  Transmission Date: 20200122
  Serious: Yes (Death)
  Sender: FDA-Public Use
  Company Number: US-PFIZER INC-2019485101

PATIENT
  Age: 18 Year
  Sex: Male

DRUGS (4)
  1. PROPYLHEXEDRINE [Suspect]
     Active Substance: PROPYLHEXEDRINE
     Dosage: UNK
  2. FENTANYL CITRATE. [Suspect]
     Active Substance: FENTANYL CITRATE
     Dosage: UNK
  3. LOPERAMIDE [Suspect]
     Active Substance: LOPERAMIDE
     Dosage: UNK
  4. DEXTROMETHORPHAN HYDROBROMIDE. [Suspect]
     Active Substance: DEXTROMETHORPHAN HYDROBROMIDE
     Dosage: UNK

REACTIONS (12)
  - Depressed level of consciousness [Fatal]
  - Coma [Fatal]
  - Hypotension [Fatal]
  - Tachycardia [Fatal]
  - Hyperreflexia [Fatal]
  - Toxicity to various agents [Fatal]
  - Anion gap [Fatal]
  - Pneumonia aspiration [Fatal]
  - Respiratory depression [Fatal]
  - Acute kidney injury [Fatal]
  - Metabolic acidosis [Fatal]
  - Tremor [Fatal]
